FAERS Safety Report 18587162 (Version 1)
Quarter: 2020Q4

REPORT INFORMATION
  Report Type: Spontaneous
  Country: FR (occurrence: FR)
  Receive Date: 20201207
  Receipt Date: 20201207
  Transmission Date: 20210114
  Serious: Yes (Hospitalization)
  Sender: FDA-Public Use
  Company Number: FR-TEVA-2020-FR-1855027

PATIENT
  Age: 82 Year
  Sex: Male
  Weight: 85 kg

DRUGS (6)
  1. CARBOPLATINE [Suspect]
     Active Substance: CARBOPLATIN
     Indication: SMALL CELL LUNG CANCER
     Dosage: UNIT DOSE :  330 MG
     Route: 041
     Dates: start: 20200812, end: 20200812
  2. ELIQUIS [Concomitant]
     Active Substance: APIXABAN
     Indication: PRODUCT USED FOR UNKNOWN INDICATION
     Dosage: UNIT DOSE : 5 MG
     Route: 048
  3. OMEPRAZOLE. [Concomitant]
     Active Substance: OMEPRAZOLE
     Indication: PRODUCT USED FOR UNKNOWN INDICATION
     Dosage: UNIT DOSE : 20 MG
     Route: 048
  4. TEMERIT 5 MG, COMPRIME QUADRISECABLE [Concomitant]
     Active Substance: NEBIVOLOL HYDROCHLORIDE
     Indication: PRODUCT USED FOR UNKNOWN INDICATION
     Dosage: UNIT DOSE : 5 MG
     Route: 048
  5. KENZEN 16 MG, COMPRIME SECABLE [Concomitant]
     Active Substance: CANDESARTAN CILEXETIL
     Indication: HYPERTENSION
     Dosage: UNIT DOSE : 16 MG
     Route: 048
  6. ETOPOSIDE. [Suspect]
     Active Substance: ETOPOSIDE
     Indication: SMALL CELL LUNG CANCER
     Dosage: UNIT DOSE : 120 MG
     Route: 041
     Dates: start: 20200811, end: 20200813

REACTIONS (3)
  - Vitreous floaters [Not Recovered/Not Resolved]
  - Papilloedema [Not Recovered/Not Resolved]
  - Vitritis [Not Recovered/Not Resolved]

NARRATIVE: CASE EVENT DATE: 2020
